FAERS Safety Report 8553075-2 (Version None)
Quarter: 2012Q3

REPORT INFORMATION
  Report Type: 
  Country: None (occurrence: None)
  Receive Date: 20120731
  Receipt Date: 20120718
  Transmission Date: 20120928
  Serious: Yes (Hospitalization)
  Sender: FDA-Public Use
  Company Number: NZ-SANOFI-AVENTIS-2012SA050738

PATIENT

DRUGS (1)
  1. ARAVA [Suspect]
     Route: 065

REACTIONS (2)
  - CEREBRAL VASOCONSTRICTION [None]
  - HYPERTENSION [None]
